FAERS Safety Report 17710534 (Version 1)
Quarter: 2020Q2

REPORT INFORMATION
  Report Type: Spontaneous
  Country: US (occurrence: US)
  Receive Date: 20200427
  Receipt Date: 20200427
  Transmission Date: 20200714
  Serious: Yes (Other)
  Sender: FDA-Public Use
  Company Number: US-ALVOGEN-2020-ALVOGEN-108205

PATIENT

DRUGS (2)
  1. BUPIVACAINE. [Suspect]
     Active Substance: BUPIVACAINE
     Indication: PRODUCT USED FOR UNKNOWN INDICATION
     Route: 064
  2. FENTANYL. [Suspect]
     Active Substance: FENTANYL
     Indication: PRODUCT USED FOR UNKNOWN INDICATION
     Route: 064

REACTIONS (2)
  - Apgar score low [Recovered/Resolved]
  - Foetal exposure during pregnancy [Unknown]
